FAERS Safety Report 18704761 (Version 4)
Quarter: 2021Q1

REPORT INFORMATION
  Report Type: Spontaneous
  Country: EG (occurrence: EG)
  Receive Date: 20210106
  Receipt Date: 20210129
  Transmission Date: 20210419
  Serious: Yes (Death, Other)
  Sender: FDA-Public Use
  Company Number: EG-SA-2021SA001325

PATIENT
  Age: 17 Month
  Sex: Female
  Weight: 8 kg

DRUGS (1)
  1. CEREZYME [Suspect]
     Active Substance: IMIGLUCERASE
     Indication: GAUCHER^S DISEASE TYPE III
     Dosage: 60 IU/KG, QOW
     Route: 042
     Dates: start: 20201012, end: 20201222

REACTIONS (5)
  - Cyanosis [Fatal]
  - Brain death [Fatal]
  - Aspiration [Fatal]
  - Loss of consciousness [Fatal]
  - Cardiac arrest [Fatal]

NARRATIVE: CASE EVENT DATE: 20201231
